FAERS Safety Report 11379669 (Version 1)
Quarter: 2015Q3

REPORT INFORMATION
  Report Type: Spontaneous
  Country: TW (occurrence: TW)
  Receive Date: 20150814
  Receipt Date: 20150814
  Transmission Date: 20151125
  Serious: Yes (Hospitalization, Other)
  Sender: FDA-Public Use
  Company Number: TW-ACCORD-033033

PATIENT
  Age: 38 Year
  Sex: Male

DRUGS (3)
  1. GRISEOFULVIN. [Interacting]
     Active Substance: GRISEOFULVIN
     Indication: ONYCHOMYCOSIS
  2. ESCITALOPRAM [Suspect]
     Active Substance: ESCITALOPRAM OXALATE
     Indication: DEPRESSION
  3. DISULFIRAM. [Interacting]
     Active Substance: DISULFIRAM
     Indication: ABSTAINS FROM ALCOHOL

REACTIONS (2)
  - Delirium [Recovered/Resolved]
  - Drug interaction [Unknown]
